FAERS Safety Report 7740766-6 (Version None)
Quarter: 2011Q3

REPORT INFORMATION
  Report Type: 
  Country: None (occurrence: None)
  Receive Date: 20110909
  Receipt Date: 20110829
  Transmission Date: 20111222
  Serious: Yes (Hospitalization, Other)
  Sender: FDA-Public Use
  Company Number: US-JNJFOC-20110813288

PATIENT
  Sex: Male
  Weight: 79.38 kg

DRUGS (11)
  1. BLOOD PRESSURE MEDICATION NOS [Concomitant]
     Indication: BLOOD PRESSURE
     Route: 048
  2. ASPIRIN [Concomitant]
     Route: 048
  3. PROBIOTIC [Concomitant]
     Route: 048
  4. POTASSIUM [Concomitant]
     Route: 048
  5. VITAMIN D [Concomitant]
     Route: 048
  6. REMICADE [Suspect]
     Route: 042
     Dates: start: 20110629
  7. REMICADE [Suspect]
     Indication: INFLAMMATORY BOWEL DISEASE
     Route: 042
     Dates: start: 20110617
  8. REMICADE [Suspect]
     Route: 042
     Dates: start: 20110711, end: 20110711
  9. NEXIUM [Concomitant]
     Indication: ANTACID THERAPY
     Route: 048
  10. PREDNISONE [Concomitant]
     Route: 048
  11. LOVASTATIN [Concomitant]
     Indication: BLOOD CHOLESTEROL
     Route: 048

REACTIONS (8)
  - DRUG INEFFECTIVE [None]
  - LARGE INTESTINAL ULCER [None]
  - HERPES SIMPLEX OPHTHALMIC [None]
  - DIARRHOEA [None]
  - ABDOMINAL PAIN UPPER [None]
  - CYTOMEGALOVIRUS INFECTION [None]
  - WEIGHT DECREASED [None]
  - PYREXIA [None]
